FAERS Safety Report 7328977-5 (Version None)
Quarter: 2011Q1

REPORT INFORMATION
  Report Type: 
  Country: None (occurrence: None)
  Receive Date: 20110225
  Receipt Date: 20110225
  Transmission Date: 20110831
  Serious: Yes (Hospitalization)
  Sender: FDA-Public Use
  Company Number: None

PATIENT
  Sex: Male
  Weight: 84.2 kg

DRUGS (14)
  1. CALCIUM [Concomitant]
  2. AMBIEN [Concomitant]
  3. ZOFRAN [Concomitant]
  4. CAPECITABINE [Suspect]
     Indication: PANCREATIC CARCINOMA
     Dosage: 1000 MG BID, M-F ORAL
     Route: 048
     Dates: start: 20110113, end: 20110126
  5. BENZONATATE [Concomitant]
  6. VALIUM [Concomitant]
  7. REQUIP [Concomitant]
  8. GAVISCON [Concomitant]
  9. VITAMIN B-12 [Concomitant]
  10. VORINOSTAT 100 MG [Suspect]
     Indication: PANCREATIC CARCINOMA
     Dosage: 100 MG DAILY, M-F ORAL
     Route: 048
     Dates: start: 20110113, end: 20110207
  11. OXYCONTIN [Concomitant]
  12. OXYCODONE [Concomitant]
  13. NEXIUM [Concomitant]
  14. MEGACE [Concomitant]

REACTIONS (2)
  - ABDOMINAL PAIN [None]
  - NO THERAPEUTIC RESPONSE [None]
